FAERS Safety Report 5956721-2 (Version None)
Quarter: 2008Q4

REPORT INFORMATION
  Report Type: 
  Country: None (occurrence: None)
  Receive Date: 20081118
  Receipt Date: 20081104
  Transmission Date: 20090506
  Serious: Yes (Death, Other)
  Sender: FDA-Public Use
  Company Number: US-ELI_LILLY_AND_COMPANY-US200810002638

PATIENT
  Age: 60 Year
  Sex: Female
  Weight: 33.878 kg

DRUGS (3)
  1. FORTEO [Suspect]
     Dates: end: 20050727
  2. FOSAMAX [Concomitant]
     Dosage: 70 UNK, WEEKLY (1/W)
  3. CALCIUM CARBONATE [Concomitant]

REACTIONS (13)
  - ATAXIA [None]
  - CATARACT [None]
  - CLAVICLE FRACTURE [None]
  - COR PULMONALE [None]
  - DEATH [None]
  - DELIRIUM [None]
  - FALL [None]
  - HYPERCALCAEMIA [None]
  - HYPONATRAEMIA [None]
  - HYPOTHYROIDISM [None]
  - RESPIRATORY FAILURE [None]
  - SOMNOLENCE [None]
  - WHITE BLOOD CELL COUNT INCREASED [None]
